FAERS Safety Report 4623606-3 (Version None)
Quarter: 2005Q2

REPORT INFORMATION
  Report Type: 
  Country: None (occurrence: None)
  Receive Date: 20050325
  Receipt Date: 20050104
  Transmission Date: 20051028
  Serious: No
  Sender: FDA-Public Use
  Company Number: USA041080571

PATIENT
  Age: 76 Year
  Sex: Female
  Weight: 49 kg

DRUGS (9)
  1. FORTEO [Suspect]
     Indication: OSTEOPOROSIS
     Dosage: 20 UG/ 1 DAY
     Dates: start: 20040801
  2. CALCIUM GLUCONATE [Concomitant]
  3. EVISTA [Concomitant]
  4. CALCIUM CARBONATE + VITAMIN D [Concomitant]
  5. COZAAR [Concomitant]
  6. ASPIRIN [Concomitant]
  7. CRESTOR [Concomitant]
  8. AMBIEN [Concomitant]
  9. MIACALCIN [Concomitant]

REACTIONS (4)
  - HEADACHE [None]
  - NAUSEA [None]
  - SENSATION OF HEAVINESS [None]
  - SINUSITIS [None]
